FAERS Safety Report 7094580-8 (Version None)
Quarter: 2010Q4

REPORT INFORMATION
  Report Type: 
  Country: None (occurrence: None)
  Receive Date: 20101110
  Receipt Date: 20101028
  Transmission Date: 20110411
  Serious: Yes (Hospitalization, Other)
  Sender: FDA-Public Use
  Company Number: BR-ELI_LILLY_AND_COMPANY-BR201010004964

PATIENT
  Sex: Female

DRUGS (9)
  1. FORTEO [Suspect]
     Indication: OSTEOPOROSIS
     Dosage: 20 UG, DAILY (1/D)
     Route: 058
  2. PHENYTOIN [Concomitant]
     Indication: EPILEPSY
     Dosage: UNK, UNKNOWN
     Route: 065
  3. SERTRALINA [Concomitant]
     Indication: MOOD ALTERED
     Dosage: UNK, UNKNOWN
     Route: 065
  4. DIGOXIN [Concomitant]
     Indication: CARDIAC DISORDER
     Dosage: UNK, UNKNOWN
     Route: 065
  5. METFORMIN HCL [Concomitant]
     Indication: DIABETES MELLITUS
     Dosage: UNK, UNKNOWN
     Route: 065
  6. DAFLON /00426001/ [Concomitant]
     Indication: PAIN IN EXTREMITY
     Dosage: UNK, UNKNOWN
     Route: 065
  7. SINVASTATINA [Concomitant]
     Indication: BLOOD CHOLESTEROL
     Dosage: UNK, UNKNOWN
     Route: 065
  8. AMITRIPTILINA [Concomitant]
     Indication: MOOD ALTERED
     Dosage: UNK, UNKNOWN
     Route: 065
  9. ALPRAZOLAM [Concomitant]
     Indication: SLEEP DISORDER
     Dosage: 0.25 MG, UNKNOWN
     Route: 065

REACTIONS (1)
  - CARDIAC VALVE DISEASE [None]
